FAERS Safety Report 10601100 (Version 1)
Quarter: 2014Q4

REPORT INFORMATION
  Report Type: Spontaneous
  Country: US (occurrence: US)
  Receive Date: 20141124
  Receipt Date: 20141124
  Transmission Date: 20150529
  Serious: Yes (Other)
  Sender: FDA-Public Use
  Company Number: US-BAYER-2014-169729

PATIENT
  Age: 31 Year
  Sex: Female

DRUGS (3)
  1. GADAVIST [Suspect]
     Active Substance: GADOBUTROL
     Indication: ANGIOGRAM
  2. GADAVIST [Suspect]
     Active Substance: GADOBUTROL
     Indication: NUCLEAR MAGNETIC RESONANCE IMAGING BRAIN
     Dosage: 8 ML, UNK
     Dates: start: 20141105, end: 20141105
  3. GADAVIST [Suspect]
     Active Substance: GADOBUTROL
     Indication: NUCLEAR MAGNETIC RESONANCE IMAGING SPINAL

REACTIONS (14)
  - Hyperhidrosis [None]
  - Sneezing [None]
  - Dyspnoea [None]
  - Mydriasis [None]
  - Burning sensation [None]
  - Tonic convulsion [None]
  - Muscle tightness [None]
  - Fall [None]
  - Pallor [None]
  - Muscle contractions involuntary [None]
  - Skin discolouration [None]
  - Nausea [None]
  - Erythema [None]
  - Loss of consciousness [None]

NARRATIVE: CASE EVENT DATE: 20141105
